FAERS Safety Report 8225220-X (Version None)
Quarter: 2012Q1

REPORT INFORMATION
  Report Type: 
  Country: None (occurrence: None)
  Receive Date: 20120321
  Receipt Date: 20120312
  Transmission Date: 20120608
  Serious: Yes (Hospitalization, Disabling, Other)
  Sender: FDA-Public Use
  Company Number: US-MERCK-1112USA01091

PATIENT
  Age: 51 Year
  Sex: Female
  Weight: 68 kg

DRUGS (4)
  1. FOSAMAX [Suspect]
     Indication: OSTEOPENIA
     Route: 048
     Dates: start: 20020101, end: 20070401
  2. BONIVA [Suspect]
     Indication: OSTEOPENIA
     Route: 048
     Dates: start: 20070501, end: 20100401
  3. VITAMIN D (UNSPECIFIED) [Concomitant]
     Indication: OSTEOPENIA
     Route: 065
     Dates: start: 20020101
  4. CALCIUM (UNSPECIFIED) [Concomitant]
     Indication: OSTEOPENIA
     Route: 065
     Dates: start: 20020101

REACTIONS (17)
  - BUNION [None]
  - RHEUMATOID ARTHRITIS [None]
  - CONTUSION [None]
  - BLISTER [None]
  - UTERINE DISORDER [None]
  - OSTEOARTHRITIS [None]
  - PSORIATIC ARTHROPATHY [None]
  - FALL [None]
  - DENTAL NECROSIS [None]
  - FRACTURE NONUNION [None]
  - FEMUR FRACTURE [None]
  - LOW TURNOVER OSTEOPATHY [None]
  - IMPAIRED HEALING [None]
  - RASH [None]
  - TOOTH FRACTURE [None]
  - ADVERSE DRUG REACTION [None]
  - OSTEOPOROSIS [None]
